FAERS Safety Report 25584512 (Version 1)
Quarter: 2025Q3

REPORT INFORMATION
  Report Type: Report from Study
  Country: JP (occurrence: JP)
  Receive Date: 20250721
  Receipt Date: 20250721
  Transmission Date: 20251020
  Serious: Yes (Death, Other)
  Sender: ABBVIE
  Company Number: JP-TAKEDA-2025TJP007118

PATIENT
  Age: 81 Year
  Sex: Male

DRUGS (2)
  1. LEUPLIN [Suspect]
     Active Substance: LEUPROLIDE ACETATE
     Indication: Bulbospinal muscular atrophy congenital
     Dosage: 22.5 MILLIGRAM, Q6MONTHS, LEUPLIN PRO FOR INJECTION KIT 22.5 MG
     Route: 065
     Dates: start: 20211026, end: 20221027
  2. LEUPLIN [Suspect]
     Active Substance: LEUPROLIDE ACETATE

REACTIONS (3)
  - Cardiac arrest [Fatal]
  - Respiratory arrest [Fatal]
  - Off label use [Unknown]

NARRATIVE: CASE EVENT DATE: 20211026
